FAERS Safety Report 5292917-3 (Version None)
Quarter: 2007Q2

REPORT INFORMATION
  Report Type: 
  Country: None (occurrence: None)
  Receive Date: 20070411
  Receipt Date: 20070405
  Transmission Date: 20071010
  Serious: Yes (Disabling, Other)
  Sender: FDA-Public Use
  Company Number: CAWYE926207MAR07

PATIENT
  Sex: Female
  Weight: 54.48 kg

DRUGS (3)
  1. VENLAFAXINE HYDROCHLORIDE [Suspect]
     Indication: DEPRESSION
     Route: 048
     Dates: start: 20070216, end: 20070220
  2. NAPROXEN [Concomitant]
     Indication: PAIN
     Dosage: 2 TABLETS BID AS NEEDED
     Route: 048
     Dates: start: 20070201, end: 20070201
  3. NAPROXEN [Concomitant]
     Indication: SWELLING

REACTIONS (1)
  - COMPLEX REGIONAL PAIN SYNDROME [None]
